FAERS Safety Report 8914748 (Version 1)
Quarter: 2012Q4

REPORT INFORMATION
  Report Type: 
  Country: CA (occurrence: CA)
  Receive Date: 20121119
  Receipt Date: 20121119
  Transmission Date: 20130627
  Serious: Yes (Other)
  Sender: FDA-Public Use
  Company Number: CA-ASTRAZENECA-2012SE86369

PATIENT
  Age: 16 Year
  Sex: Male

DRUGS (2)
  1. PULMICORT RESPULES [Suspect]
     Indication: ASTHMA
     Dosage: 0.25 TO 0.5 MG DAILY ONCE DAILY OR TWICE DAILY
     Route: 055
     Dates: start: 1997, end: 2005
  2. PULMICORT RESPULES [Suspect]
     Indication: WHEEZING
     Dosage: 0.25 TO 0.5 MG DAILY ONCE DAILY OR TWICE DAILY
     Route: 055
     Dates: start: 1997, end: 2005

REACTIONS (3)
  - Pectus excavatum [Not Recovered/Not Resolved]
  - Body height decreased [Recovering/Resolving]
  - Intentional drug misuse [Unknown]
